FAERS Safety Report 18572318 (Version 2)
Quarter: 2020Q4

REPORT INFORMATION
  Report Type: Other
  Country: JP (occurrence: JP)
  Receive Date: 20201203
  Receipt Date: 20201208
  Transmission Date: 20210114
  Serious: Yes (Death, Other)
  Sender: FDA-Public Use
  Company Number: JP-ROCHE-2724632

PATIENT
  Age: 72 Year
  Sex: Male

DRUGS (1)
  1. CELLCEPT [Suspect]
     Active Substance: MYCOPHENOLATE MOFETIL\MYCOPHENOLATE MOFETIL HYDROCHLORIDE
     Indication: LIVER DISORDER
     Dosage: DOSE INTERVAL UNCERTAINTY
     Route: 048

REACTIONS (5)
  - Off label use [Unknown]
  - Disseminated intravascular coagulation [Unknown]
  - Bronchopulmonary aspergillosis [Unknown]
  - Gastrointestinal haemorrhage [Fatal]
  - Intentional product use issue [Unknown]
